FAERS Safety Report 7949729-9 (Version None)
Quarter: 2011Q4

REPORT INFORMATION
  Report Type: 
  Country: None (occurrence: None)
  Receive Date: 20111130
  Receipt Date: 20111123
  Transmission Date: 20120403
  Serious: Yes (Other)
  Sender: FDA-Public Use
  Company Number: US-PFIZER INC-2011286873

PATIENT
  Sex: Male

DRUGS (5)
  1. LANTUS [Suspect]
     Dosage: 28 IU, 2X/DAY (28 UNITS TWICE A DAY)
  2. ACTOS [Suspect]
     Dosage: UNK
  3. GLIPIZIDE [Suspect]
     Dosage: UNK
  4. METFORMIN HCL [Suspect]
     Dosage: UNK
  5. LANTUS [Suspect]
     Indication: TYPE 2 DIABETES MELLITUS
     Dosage: UNK (12-18 UNITS TWICE DAILY)

REACTIONS (3)
  - BLOOD GLUCOSE INCREASED [None]
  - RENAL DISORDER [None]
  - GLYCOSYLATED HAEMOGLOBIN INCREASED [None]
